FAERS Safety Report 5329708-0 (Version None)
Quarter: 2007Q2

REPORT INFORMATION
  Report Type: 
  Country: None (occurrence: None)
  Receive Date: 20070515
  Receipt Date: 20070507
  Transmission Date: 20071010
  Serious: Yes (Death, Hospitalization)
  Sender: FDA-Public Use
  Company Number: 028-C5013-07041060

PATIENT
  Age: 71 Year
  Sex: Male

DRUGS (5)
  1. CC-5013 (LENALIDOMIDE) (CAPSULES) [Suspect]
     Indication: MULTIPLE MYELOMA
     Dosage: 15 MG, DAILY X 21 DAYS, ORAL
     Route: 048
     Dates: start: 20070117, end: 20070408
  2. DEXAMETHASONE TAB [Suspect]
     Indication: MULTIPLE MYELOMA
     Dosage: 16 MG, DAYS 1-4, 9-12, + 17-20
     Dates: start: 20070117, end: 20070408
  3. WARFARIN SODIUM [Concomitant]
  4. GAVISCON [Concomitant]
  5. HYDROMORPHONE HCL [Concomitant]

REACTIONS (5)
  - CELLULITIS [None]
  - ESCHERICHIA SEPSIS [None]
  - HAEMOGLOBIN DECREASED [None]
  - PLATELET COUNT DECREASED [None]
  - WHITE BLOOD CELL COUNT DECREASED [None]
